FAERS Safety Report 22097524 (Version 1)
Quarter: 2023Q1

REPORT INFORMATION
  Report Type: Spontaneous
  Country: US (occurrence: US)
  Receive Date: 20230315
  Receipt Date: 20230315
  Transmission Date: 20230418
  Serious: No
  Sender: FDA-Public Use
  Company Number: US-ASTELLAS-2023US003308

PATIENT
  Age: 81 Year
  Sex: Female

DRUGS (1)
  1. CRESEMBA [Suspect]
     Active Substance: ISAVUCONAZONIUM SULFATE
     Indication: Product used for unknown indication
     Dosage: UNK UNK, UNKNOWN FREQ.
     Route: 065

REACTIONS (4)
  - Night sweats [Unknown]
  - Hyperhidrosis [Unknown]
  - Gingival bleeding [Unknown]
  - Gingival pain [Unknown]

NARRATIVE: CASE EVENT DATE: 20220101
